FAERS Safety Report 22142144 (Version 3)
Quarter: 2023Q2

REPORT INFORMATION
  Report Type: Spontaneous
  Country: US (occurrence: US)
  Receive Date: 20230327
  Receipt Date: 20230502
  Transmission Date: 20230721
  Serious: Yes (Hospitalization)
  Sender: FDA-Public Use
  Company Number: US-PHARMAAND-2023PHR00025

PATIENT
  Sex: Male
  Weight: 63.492 kg

DRUGS (11)
  1. PEGASYS [Suspect]
     Active Substance: PEGINTERFERON ALFA-2A
     Indication: Neoplasm malignant
     Dosage: 90 ?G, 1X/WEEK
     Route: 058
     Dates: end: 202302
  2. PEGASYS [Suspect]
     Active Substance: PEGINTERFERON ALFA-2A
     Indication: Myelodysplastic syndrome with ringed sideroblasts
     Dosage: 90 ?G, 1X/WEEK
     Route: 058
     Dates: start: 2023
  3. HYDROXYUREA [Concomitant]
     Active Substance: HYDROXYUREA
     Dosage: 500 MG, EVERY OTHER DAY
     Route: 048
  4. ALLOPURINOL [Concomitant]
     Active Substance: ALLOPURINOL
     Dosage: 300 MG, 1X/DAY
     Route: 048
  5. FLOMAX [Concomitant]
     Active Substance: TAMSULOSIN HYDROCHLORIDE
     Dosage: 0.4 MG, 1X/DAY
     Route: 048
  6. PROZAC [Concomitant]
     Active Substance: FLUOXETINE HYDROCHLORIDE
     Dosage: 80 MG, 1X/DAY
  7. PROZAC [Concomitant]
     Active Substance: FLUOXETINE HYDROCHLORIDE
     Dosage: 40 MG, 1X/DAY
     Route: 048
  8. ERYTHROPOIETIN [Concomitant]
     Active Substance: ERYTHROPOIETIN
     Dosage: UNK, EVERY 2 WEEKS AT THE DOCTOR^S OFFICE
  9. FLUOXETINE [Concomitant]
     Active Substance: FLUOXETINE HYDROCHLORIDE
     Dosage: 40 MG, 1X/DAY
     Route: 048
  10. COLACE [Concomitant]
     Active Substance: DOCUSATE SODIUM
     Dosage: 100 MG, 1X/DAY
     Route: 048
  11. XARELTO [Concomitant]
     Active Substance: RIVAROXABAN
     Dosage: 10 MG, 1X/DAY WITH FOOD
     Route: 048

REACTIONS (16)
  - Pneumonia aspiration [Recovering/Resolving]
  - Pulmonary fibrosis [Unknown]
  - Hydronephrosis [Unknown]
  - Urinary retention [Unknown]
  - Nephrolithiasis [Unknown]
  - Sepsis [Unknown]
  - Pneumonia [Unknown]
  - Pulmonary hypertension [Unknown]
  - Anaemia [Unknown]
  - Depression [Unknown]
  - Cachexia [Unknown]
  - Cardiomegaly [Not Recovered/Not Resolved]
  - Muscle atrophy [Unknown]
  - Nephropathy [Not Recovered/Not Resolved]
  - Off label use [Unknown]
  - Weight decreased [Not Recovered/Not Resolved]

NARRATIVE: CASE EVENT DATE: 20230101
